FAERS Safety Report 24212988 (Version 1)
Quarter: 2024Q3

REPORT INFORMATION
  Report Type: Spontaneous
  Country: US (occurrence: US)
  Receive Date: 20240815
  Receipt Date: 20240815
  Transmission Date: 20241016
  Serious: Yes (Hospitalization)
  Sender: ANI
  Company Number: US-ANIPHARMA-2024-US-036527

PATIENT
  Age: 63 Year
  Sex: Female
  Weight: 68.04 kg

DRUGS (10)
  1. CORTICOTROPIN [Suspect]
     Active Substance: CORTICOTROPIN
     Indication: Colitis ulcerative
     Dosage: INJECT 80 UNITS (1ML) SUBCUTANEOUSLY TWO TIMES PER WEEK
     Route: 058
     Dates: start: 202401
  2. ACETAMINOPHEN\HYDROCODONE [Concomitant]
     Active Substance: ACETAMINOPHEN\HYDROCODONE
  3. ENTYVIO [Concomitant]
     Active Substance: VEDOLIZUMAB
  4. OXYBUTYNIN CHLORIDE [Concomitant]
     Active Substance: OXYBUTYNIN CHLORIDE
  5. FOLIC ACID [Concomitant]
     Active Substance: FOLIC ACID
  6. APRISO [Concomitant]
     Active Substance: MESALAMINE
  7. VITAMIN D [Concomitant]
     Active Substance: VITAMIN D NOS
  8. CALCIUM [Concomitant]
     Active Substance: CALCIUM
  9. PROBIOTICS NOS [Concomitant]
     Active Substance: PROBIOTICS NOS
  10. HAIR SKIN + NAILS GUMMIES [Concomitant]

REACTIONS (6)
  - Blood pressure increased [Unknown]
  - Erythema [Unknown]
  - Chest discomfort [Unknown]
  - Weight increased [Not Recovered/Not Resolved]
  - Palpitations [Recovered/Resolved]
  - Cardiac flutter [Recovered/Resolved]

NARRATIVE: CASE EVENT DATE: 20240101
